FAERS Safety Report 4357526-9 (Version None)
Quarter: 2004Q2

REPORT INFORMATION
  Report Type: 
  Country: None (occurrence: None)
  Receive Date: 20040511
  Receipt Date: 20040511
  Transmission Date: 20050107
  Serious: No
  Sender: FDA-Public Use
  Company Number: None

PATIENT
  Sex: Male

DRUGS (2)
  1. ISOPTIN [Suspect]
     Indication: CEREBROVASCULAR ACCIDENT
     Dosage: ORAL-120 MG?
     Route: 048
     Dates: start: 19950101
  2. ISOPTIN [Suspect]
     Indication: HYPERTENSION
     Dosage: ORAL-120 MG?
     Route: 048
     Dates: start: 19950101

REACTIONS (3)
  - CEREBROVASCULAR ACCIDENT [None]
  - DRUG EFFECT DECREASED [None]
  - PHARMACEUTICAL PRODUCT COMPLAINT [None]
